FAERS Safety Report 8547785-0 (Version None)
Quarter: 2012Q3

REPORT INFORMATION
  Report Type: 
  Country: None (occurrence: None)
  Receive Date: 20120727
  Receipt Date: 20120123
  Transmission Date: 20120928
  Serious: Yes (Other)
  Sender: FDA-Public Use
  Company Number: US-ASTRAZENECA-2012SE01763

PATIENT
  Age: 47 Year
  Sex: Female
  Weight: 86.2 kg

DRUGS (8)
  1. CELEXA [Concomitant]
  2. NORCO [Concomitant]
     Indication: BACK DISORDER
  3. SEROQUEL [Suspect]
     Indication: ANXIETY
     Route: 048
  4. SEROQUEL [Suspect]
     Indication: DEPRESSION
     Route: 048
  5. SEROQUEL [Suspect]
     Indication: SCHIZOPHRENIA
     Route: 048
  6. SEROQUEL [Suspect]
     Indication: BIPOLAR DISORDER
     Route: 048
  7. SEROQUEL [Suspect]
     Indication: SLEEP DISORDER
     Route: 048
  8. SOMA [Concomitant]

REACTIONS (9)
  - SCHIZOPHRENIA [None]
  - DRUG DOSE OMISSION [None]
  - MALAISE [None]
  - MENTAL DISORDER [None]
  - CHEST PAIN [None]
  - INSOMNIA [None]
  - BIPOLAR DISORDER [None]
  - WITHDRAWAL SYNDROME [None]
  - OFF LABEL USE [None]
